FAERS Safety Report 12263698 (Version 2)
Quarter: 2016Q2

REPORT INFORMATION
  Report Type: Report from Study
  Country: MX (occurrence: MX)
  Receive Date: 20160413
  Receipt Date: 20160620
  Transmission Date: 20160815
  Serious: Yes (Other)
  Sender: FDA-Public Use
  Company Number: PHHY2016MX037126

PATIENT
  Age: 74 Year
  Sex: Female
  Weight: 80 kg

DRUGS (13)
  1. EXELON PATCH [Suspect]
     Active Substance: RIVASTIGMINE
     Indication: DEMENTIA ALZHEIMER^S TYPE
     Dosage: (PATCH 5 CM2), 3 YEARS AGO
     Route: 062
  2. AROPAX [Suspect]
     Active Substance: PAROXETINE HYDROCHLORIDE
     Indication: MEMORY IMPAIRMENT
  3. ATACAND PLUS [Concomitant]
     Active Substance: CANDESARTAN CILEXETIL\HYDROCHLOROTHIAZIDE
     Indication: DEMENTIA ALZHEIMER^S TYPE
     Dosage: 0.5 DF, UNK (AT MORNING), 3 YEARS AGO
     Route: 048
  4. OMEPRAZOLE. [Concomitant]
     Active Substance: OMEPRAZOLE
     Indication: GASTRITIS PROPHYLAXIS
     Dosage: 2 DF, QD (1 AT MORNING AND 1 AT NIGHT)
     Route: 065
  5. ZYLOPRIM [Concomitant]
     Active Substance: ALLOPURINOL
     Indication: PRODUCT USED FOR UNKNOWN INDICATION
     Dosage: 1 DF, UNK (AT MORNING)
     Route: 048
  6. EXELON PATCH [Suspect]
     Active Substance: RIVASTIGMINE
     Indication: MEMORY IMPAIRMENT
  7. AROPAX [Suspect]
     Active Substance: PAROXETINE HYDROCHLORIDE
     Indication: DEMENTIA ALZHEIMER^S TYPE
     Dosage: 1 DF, UNK (EVERY THIRD DAY)
     Route: 048
  8. NOVOTIRAL [Concomitant]
     Active Substance: LEVOTHYROXINE
     Indication: THYROID DISORDER
  9. LEXOTAN [Concomitant]
     Active Substance: BROMAZEPAM
     Indication: SLEEP DISORDER
     Dosage: UNK
     Route: 065
  10. OMEPRAZOLE. [Concomitant]
     Active Substance: OMEPRAZOLE
     Dosage: 1 DF, (IN THE MORNING) 4-5 YEARS AGO
     Route: 048
  11. CALCORT [Concomitant]
     Active Substance: DEFLAZACORT
     Indication: PRODUCT USED FOR UNKNOWN INDICATION
     Dosage: 0.5 DF, QD (AT MORNING)
     Route: 048
  12. NOVOTIRAL [Concomitant]
     Active Substance: LEVOTHYROXINE
     Indication: BLOOD PRESSURE ABNORMAL
     Dosage: 1 DF, QD (AT MORNING). MORE THAN 20 YEARS AGO
     Route: 048
  13. GABAPENTIN. [Concomitant]
     Active Substance: GABAPENTIN
     Indication: PRODUCT USED FOR UNKNOWN INDICATION
     Dosage: 1 DF, UNK (AT NIGHT), SEVERAL YEARS AGO
     Route: 048

REACTIONS (13)
  - Amnesia [Unknown]
  - Asthenia [Not Recovered/Not Resolved]
  - Somnolence [Recovering/Resolving]
  - Weight increased [Recovered/Resolved]
  - Product use issue [Not Recovered/Not Resolved]
  - Blindness unilateral [Not Recovered/Not Resolved]
  - Arthrofibrosis [Not Recovered/Not Resolved]
  - Retinal thickening [Unknown]
  - Retinal disorder [Unknown]
  - Decreased appetite [Unknown]
  - Rheumatic disorder [Not Recovered/Not Resolved]
  - Arthritis [Not Recovered/Not Resolved]
  - Cognitive disorder [Unknown]

NARRATIVE: CASE EVENT DATE: 20130223
